FAERS Safety Report 20687062 (Version 1)
Quarter: 2022Q2

REPORT INFORMATION
  Report Type: Spontaneous
  Country: AU (occurrence: AU)
  Receive Date: 20220407
  Receipt Date: 20220407
  Transmission Date: 20220721
  Serious: Yes (Other)
  Sender: FDA-Public Use
  Company Number: AU-JNJFOC-20220365459

PATIENT
  Age: 7 Year

DRUGS (3)
  1. CONCERTA [Interacting]
     Active Substance: METHYLPHENIDATE HYDROCHLORIDE
     Indication: Product used for unknown indication
     Dosage: 1 TABLET IN THE MORNING
     Route: 065
  2. ACETAMINOPHEN [Concomitant]
     Active Substance: ACETAMINOPHEN
  3. IBUPROFEN [Concomitant]
     Active Substance: IBUPROFEN

REACTIONS (5)
  - Orthopaedic procedure [Unknown]
  - Drug interaction [Unknown]
  - Therapeutic response shortened [Unknown]
  - Psychomotor hyperactivity [Unknown]
  - Insomnia [Unknown]
